FAERS Safety Report 25551364 (Version 2)
Quarter: 2025Q3

REPORT INFORMATION
  Report Type: Spontaneous
  Country: US (occurrence: US)
  Receive Date: 20250714
  Receipt Date: 20250726
  Transmission Date: 20251021
  Serious: No
  Sender: IPSEN BIOPHARMACEUTICALS, INC.
  Company Number: US-IPSEN Group, Research and Development-2025-15837

PATIENT
  Sex: Female

DRUGS (18)
  1. IQIRVO [Suspect]
     Active Substance: ELAFIBRANOR
     Indication: Primary biliary cholangitis
  2. BACLOFEN [Concomitant]
     Active Substance: BACLOFEN
  3. FIORICET [Concomitant]
     Active Substance: ACETAMINOPHEN\BUTALBITAL\CAFFEINE
  4. CALCIUM GLUCONATE [Concomitant]
     Active Substance: CALCIUM GLUCONATE
  5. ESTRADIOL [Concomitant]
     Active Substance: ESTRADIOL
  6. REPATHA [Concomitant]
     Active Substance: EVOLOCUMAB
  7. FLUTICASONE PROPIONATE [Concomitant]
     Active Substance: FLUTICASONE PROPIONATE
  8. IBUPROFEN [Concomitant]
     Active Substance: IBUPROFEN
  9. IPRATROPIUM BROMIDE [Concomitant]
     Active Substance: IPRATROPIUM BROMIDE
  10. OMEPRAZOLE [Concomitant]
     Active Substance: OMEPRAZOLE
  11. ONDANSETRON HYDROCHLORIDE [Concomitant]
     Active Substance: ONDANSETRON HYDROCHLORIDE
  12. RESTASIS [Concomitant]
     Active Substance: CYCLOSPORINE
  13. HYALURONATE SODIUM [Concomitant]
     Active Substance: HYALURONATE SODIUM
  14. VITAMIN D3 [Concomitant]
     Active Substance: CHOLECALCIFEROL
  15. ANACIN (ACETAMINOPHEN\ASPIRIN\CAFFEINE) [Concomitant]
     Active Substance: ACETAMINOPHEN\ASPIRIN\CAFFEINE
  16. VITAMIN C [Concomitant]
     Active Substance: ASCORBIC ACID
  17. CVS MAGNESIUM OXIDE [Concomitant]
  18. METOPROLOL SUCCINATE [Concomitant]
     Active Substance: METOPROLOL SUCCINATE

REACTIONS (2)
  - Pain [Unknown]
  - Fibromyalgia [Unknown]
